FAERS Safety Report 9663846 (Version 1)
Quarter: 2013Q4

REPORT INFORMATION
  Report Type: Spontaneous
  Country: GB (occurrence: GB)
  Receive Date: 20131101
  Receipt Date: 20131101
  Transmission Date: 20140711
  Serious: Yes (Other)
  Sender: FDA-Public Use
  Company Number: GB-TEVA-439956ISR

PATIENT
  Age: 50 Year
  Sex: Female
  Weight: 63.5 kg

DRUGS (2)
  1. AMITRIPTYLINE [Suspect]
     Indication: INSOMNIA
     Dosage: 25 MILLIGRAM DAILY; 25MG, 1 OR 2 AT NIGHT
     Route: 048
  2. ATORVASTATIN [Concomitant]

REACTIONS (3)
  - Faeces hard [Recovered/Resolved]
  - Gastrointestinal motility disorder [Recovered/Resolved]
  - Pain [Recovered/Resolved]
